FAERS Safety Report 7478553-9 (Version None)
Quarter: 2011Q2

REPORT INFORMATION
  Report Type: 
  Country: None (occurrence: None)
  Receive Date: 20110513
  Receipt Date: 20110510
  Transmission Date: 20111010
  Serious: Yes (Hospitalization)
  Sender: FDA-Public Use
  Company Number: US-PFIZER INC-2011100529

PATIENT
  Sex: Male
  Weight: 100 kg

DRUGS (2)
  1. ADVIL LIQUI-GELS [Suspect]
     Indication: BACK PAIN
     Dosage: 200 MG, UNK
     Route: 065
     Dates: end: 20110504
  2. ADVIL LIQUI-GELS [Suspect]
     Indication: PAIN IN EXTREMITY

REACTIONS (3)
  - PHARYNGEAL INFLAMMATION [None]
  - GASTRITIS [None]
  - CHEST PAIN [None]
